FAERS Safety Report 6232622-X (Version None)
Quarter: 2009Q2

REPORT INFORMATION
  Report Type: 
  Country: None (occurrence: None)
  Receive Date: 20090616
  Receipt Date: 20090616
  Transmission Date: 20091009
  Serious: No
  Sender: FDA-Public Use
  Company Number: None

PATIENT
  Age: 54 Year
  Sex: Male
  Weight: 86.1834 kg

DRUGS (1)
  1. OMEPRAZOLE [Suspect]
     Indication: GASTROOESOPHAGEAL REFLUX DISEASE
     Dosage: 20 MG 1 AS NEEDED NOT EVERY DAY ORAL
     Route: 048
     Dates: start: 20090501

REACTIONS (3)
  - DIZZINESS [None]
  - NAUSEA [None]
  - PRODUCT SUBSTITUTION ISSUE [None]
